FAERS Safety Report 9805387 (Version 2)
Quarter: 2014Q1

REPORT INFORMATION
  Report Type: Spontaneous
  Country: US (occurrence: US)
  Receive Date: 20140109
  Receipt Date: 20140110
  Transmission Date: 20141002
  Serious: No
  Sender: FDA-Public Use
  Company Number: US-PFIZER INC-2014004824

PATIENT
  Age: 57 Year
  Sex: Female
  Weight: 72.56 kg

DRUGS (9)
  1. EFFEXOR XR [Suspect]
     Indication: HOT FLUSH
     Dosage: 37.5 MG, DAILY
     Dates: start: 200809
  2. EFFEXOR XR [Suspect]
     Dosage: 75 MG, DAILY
  3. EFFEXOR XR [Suspect]
     Dosage: 150 MG, DAILY
  4. EFFEXOR XR [Suspect]
     Dosage: 75 MG, DAILY
  5. EFFEXOR XR [Suspect]
     Dosage: 37.5 MG, DAILY
  6. EFFEXOR XR [Suspect]
     Dosage: 37.5 MG, ALTERNATE DAY
     Dates: end: 20131228
  7. METOPROLOL [Concomitant]
     Indication: CARDIAC DISORDER
     Dosage: 50 MG, 2X/DAY
  8. ASPIRIN [Concomitant]
     Indication: CARDIAC DISORDER
     Dosage: 81 MG, DAILY
  9. LIPITOR [Concomitant]
     Indication: BLOOD CHOLESTEROL INCREASED
     Dosage: 40 MG, DAILY

REACTIONS (10)
  - Dizziness [Not Recovered/Not Resolved]
  - Paraesthesia [Not Recovered/Not Resolved]
  - Malaise [Not Recovered/Not Resolved]
  - Irritability [Not Recovered/Not Resolved]
  - Feeling abnormal [Not Recovered/Not Resolved]
  - Abdominal pain upper [Not Recovered/Not Resolved]
  - Dyspepsia [Recovered/Resolved]
  - Nausea [Not Recovered/Not Resolved]
  - Head discomfort [Not Recovered/Not Resolved]
  - Off label use [Unknown]
